FAERS Safety Report 19271025 (Version 5)
Quarter: 2022Q1

REPORT INFORMATION
  Report Type: Report from Study
  Country: US (occurrence: US)
  Receive Date: 20210518
  Receipt Date: 20220329
  Transmission Date: 20220423
  Serious: Yes (Life-Threatening, Other)
  Sender: FDA-Public Use
  Company Number: US-PFIZER INC-2021541751

PATIENT

DRUGS (2)
  1. NELFINAVIR MESYLATE [Suspect]
     Active Substance: NELFINAVIR MESYLATE
     Indication: Cervix carcinoma
     Dosage: 875 MG, 2X/DAY (DL1, 7 DAYS BEFORE THE INITIATION OF CRT)
     Route: 048
  2. CISPLATIN [Concomitant]
     Active Substance: CISPLATIN
     Indication: Cervix carcinoma
     Dosage: 40 MG/M2, WEEKLY (FOR 6 CYCLES)

REACTIONS (5)
  - Anaemia [Unknown]
  - Nausea [Unknown]
  - Diarrhoea [Unknown]
  - Hypokalaemia [Unknown]
  - Hypomagnesaemia [Unknown]
